FAERS Safety Report 5612193-9 (Version None)
Quarter: 2008Q1

REPORT INFORMATION
  Report Type: 
  Country: None (occurrence: None)
  Receive Date: 20080131
  Receipt Date: 20080131
  Transmission Date: 20080703
  Serious: Yes (Other)
  Sender: FDA-Public Use
  Company Number: None

PATIENT
  Age: 49 Year
  Sex: Male
  Weight: 77.1115 kg

DRUGS (3)
  1. DOCETAXEL   80MG   SANOFI AVENTIS [Suspect]
     Indication: NON-SMALL CELL LUNG CANCER
     Dosage: 80MG  Q21 DAYS  IV DRIP
     Route: 041
     Dates: start: 20080117, end: 20080117
  2. DOCETAXEL  80MG   SANOFI AVENTIS [Suspect]
  3. DOCETAXEL   20MG   SANOFI AVENTIS [Suspect]
     Indication: NON-SMALL CELL LUNG CANCER
     Dosage: 60MG  Q21 DAYS  IV DRIP
     Route: 041
     Dates: start: 20080117, end: 20080117

REACTIONS (6)
  - BACK PAIN [None]
  - BLOOD PRESSURE INCREASED [None]
  - DYSPNOEA [None]
  - FEELING ABNORMAL [None]
  - FLUSHING [None]
  - HEART RATE INCREASED [None]
